FAERS Safety Report 12447402 (Version 1)
Quarter: 2016Q2

REPORT INFORMATION
  Report Type: Spontaneous
  Country: HU (occurrence: HU)
  Receive Date: 20160608
  Receipt Date: 20160608
  Transmission Date: 20160815
  Serious: Yes (Other)
  Sender: FDA-Public Use
  Company Number: HU-PFIZER INC-2016284740

PATIENT
  Age: 69 Year
  Sex: Male

DRUGS (4)
  1. SUTENT [Suspect]
     Active Substance: SUNITINIB MALATE
     Indication: METASTATIC RENAL CELL CARCINOMA
     Dosage: 50 MG, 4/2 SCHEMA (1ST CYCLE)
     Dates: start: 20080612, end: 20080710
  2. SUTENT [Suspect]
     Active Substance: SUNITINIB MALATE
     Dosage: 37.5 MG, CYCLIC (4/2 SCHEMA)
  3. SUTENT [Suspect]
     Active Substance: SUNITINIB MALATE
     Dosage: 50 MG, 4/2 SCHEMA (2ND CYCLE)
     Dates: start: 20080724, end: 20080814
  4. SUTENT [Suspect]
     Active Substance: SUNITINIB MALATE
     Dosage: 37.5 MG, 4/2 SCHEMA (3RD CYCLE)
     Dates: start: 20080925, end: 20081023

REACTIONS (16)
  - Fatigue [Recovering/Resolving]
  - Palmar-plantar erythrodysaesthesia syndrome [Unknown]
  - Dysgeusia [Unknown]
  - Gait disturbance [Unknown]
  - Hyponatraemia [Unknown]
  - Erythema [Unknown]
  - Cholelithiasis [Unknown]
  - Hypertension [Recovered/Resolved]
  - Second primary malignancy [Unknown]
  - Gastritis haemorrhagic [Unknown]
  - Metastatic squamous cell carcinoma [Unknown]
  - Decreased appetite [Unknown]
  - Cheilitis [Unknown]
  - Mucosal inflammation [Unknown]
  - Hypothyroidism [Unknown]
  - Renal vein thrombosis [Unknown]

NARRATIVE: CASE EVENT DATE: 2008
